FAERS Safety Report 5629844-5 (Version None)
Quarter: 2008Q1

REPORT INFORMATION
  Report Type: 
  Country: None (occurrence: None)
  Receive Date: 20080218
  Receipt Date: 20080207
  Transmission Date: 20080703
  Serious: Yes (Hospitalization)
  Sender: FDA-Public Use
  Company Number: SE-ASTRAZENECA-2008SE00749

PATIENT
  Age: 705 Month
  Sex: Male

DRUGS (18)
  1. CRESTOR [Suspect]
     Indication: HYPERLIPIDAEMIA
     Route: 048
     Dates: start: 20050101, end: 20070928
  2. CRESTOR [Suspect]
     Indication: HYPERTRIGLYCERIDAEMIA
     Route: 048
     Dates: start: 20050101, end: 20070928
  3. DALACIN [Concomitant]
  4. CITALOPRAM HYDROBROMIDE [Concomitant]
  5. EZETROL [Concomitant]
  6. NIASPAN [Concomitant]
  7. IRBESARTAN [Concomitant]
  8. PRAVIDEL [Concomitant]
  9. GENOTROPIN [Concomitant]
  10. INSULIN HUMAN [Concomitant]
  11. E-VITAMIN [Concomitant]
  12. ETALPHA [Concomitant]
  13. FURIX [Concomitant]
  14. VITAPLEX MINERAL [Concomitant]
  15. CALCICHEW-D3 [Concomitant]
  16. TRIOBE [Concomitant]
  17. ALFADIL [Concomitant]
  18. METOPROLOL TARTRATE [Concomitant]

REACTIONS (2)
  - RENAL FAILURE [None]
  - RHABDOMYOLYSIS [None]
